FAERS Safety Report 5895146-5 (Version None)
Quarter: 2008Q3

REPORT INFORMATION
  Report Type: 
  Country: None (occurrence: None)
  Receive Date: 20080924
  Receipt Date: 20080911
  Transmission Date: 20090109
  Serious: Yes (Other)
  Sender: FDA-Public Use
  Company Number: US-PFIZER INC-2008077839

PATIENT
  Sex: Male

DRUGS (8)
  1. DILANTIN [Suspect]
     Indication: CONVULSION
  2. VIAGRA [Suspect]
     Indication: ERECTILE DYSFUNCTION
     Dates: start: 19980101
  3. BENAZEPRIL HYDROCHLORIDE [Suspect]
     Indication: HYPERTENSION
  4. CALCIUM WITH VITAMIN D [Concomitant]
  5. NEURONTIN [Concomitant]
  6. PRILOSEC [Concomitant]
     Indication: GASTROOESOPHAGEAL REFLUX DISEASE
  7. KEPPRA [Concomitant]
  8. FOSAMAX [Concomitant]
     Indication: OSTEOPOROSIS

REACTIONS (8)
  - BACK INJURY [None]
  - CONVULSION [None]
  - FALL [None]
  - FRACTURE [None]
  - LIGAMENT INJURY [None]
  - OSTEOPOROSIS [None]
  - SPINAL FRACTURE [None]
  - SURGERY [None]
